FAERS Safety Report 20662274 (Version 1)
Quarter: 2022Q2

REPORT INFORMATION
  Report Type: Spontaneous
  Country: DE (occurrence: DE)
  Receive Date: 20220401
  Receipt Date: 20220401
  Transmission Date: 20220721
  Serious: Yes (Other)
  Sender: FDA-Public Use
  Company Number: DE-009507513-2203DEU009664

PATIENT
  Sex: Male

DRUGS (1)
  1. PEMBROLIZUMAB [Suspect]
     Active Substance: PEMBROLIZUMAB
     Indication: Hereditary non-polyposis colorectal cancer syndrome
     Dosage: UNK, Q3W
     Dates: start: 2015, end: 2017

REACTIONS (3)
  - Renal impairment [Unknown]
  - Dehydration [Unknown]
  - Adverse event [Unknown]
